FAERS Safety Report 7555800-6 (Version None)
Quarter: 2011Q2

REPORT INFORMATION
  Report Type: 
  Country: None (occurrence: None)
  Receive Date: 20110618
  Receipt Date: 20110606
  Transmission Date: 20111010
  Serious: Yes (Other)
  Sender: FDA-Public Use
  Company Number: US-BAYER-2011-048420

PATIENT
  Age: 47 Year
  Sex: Female
  Weight: 67.982 kg

DRUGS (6)
  1. PROTONIX [Interacting]
     Indication: GASTROOESOPHAGEAL REFLUX DISEASE
     Dosage: 40 MG, BID
     Route: 048
     Dates: start: 20100101
  2. PROTONIX [Interacting]
     Indication: ABDOMINAL PAIN UPPER
  3. TOPROL-XL [Concomitant]
     Indication: HYPERTENSION
     Dosage: DAILY DOSE 50 MG
  4. PROTONIX [Interacting]
     Indication: GASTRIC DISORDER
  5. CIPROFLOXACIN HCL [Suspect]
     Dosage: UNK
  6. PROTONIX [Interacting]
     Indication: DYSPEPSIA

REACTIONS (3)
  - ARTHRALGIA [None]
  - DRUG INTERACTION [None]
  - PAIN IN EXTREMITY [None]
